FAERS Safety Report 5827827-3 (Version None)
Quarter: 2008Q3

REPORT INFORMATION
  Report Type: 
  Country: None (occurrence: None)
  Receive Date: 20080730
  Receipt Date: 20080721
  Transmission Date: 20090109
  Serious: Yes (Other)
  Sender: FDA-Public Use
  Company Number: GB-AMGEN-UK274899

PATIENT
  Sex: Male

DRUGS (1)
  1. KINERET [Suspect]
     Route: 058
     Dates: start: 20080124, end: 20080402

REACTIONS (1)
  - SQUAMOUS CELL CARCINOMA [None]
